FAERS Safety Report 6587513-1 (Version None)
Quarter: 2010Q1

REPORT INFORMATION
  Report Type: 
  Country: None (occurrence: None)
  Receive Date: 20100204
  Receipt Date: 20100126
  Transmission Date: 20100710
  Serious: Yes (Other)
  Sender: FDA-Public Use
  Company Number: 2010000481

PATIENT
  Sex: Female

DRUGS (1)
  1. AMRIX [Suspect]
     Dosage: (15 MG), ORAL
     Route: 048

REACTIONS (1)
  - ERYTHEMA MULTIFORME [None]
